FAERS Safety Report 9770150 (Version 1)
Quarter: 2013Q4

REPORT INFORMATION
  Report Type: Spontaneous
  Country: JP (occurrence: JP)
  Receive Date: 20131218
  Receipt Date: 20131218
  Transmission Date: 20140711
  Serious: Yes (Other)
  Sender: FDA-Public Use
  Company Number: JP-ELI_LILLY_AND_COMPANY-JP201312003405

PATIENT
  Age: 50 Year
  Sex: Male

DRUGS (2)
  1. HUMULIN 30% REGULAR, 70% NPH [Suspect]
     Indication: DIABETES MELLITUS
     Dosage: 6 IU, EACH MORNING
     Route: 058
  2. HUMULIN NPH [Suspect]
     Indication: DIABETES MELLITUS
     Dosage: 6 IU, EACH EVENING
     Route: 058

REACTIONS (4)
  - Fall [Recovered/Resolved]
  - Rib fracture [Unknown]
  - Visceral pain [Not Recovered/Not Resolved]
  - Hypoglycaemia [Unknown]
